FAERS Safety Report 9700156 (Version 1)
Quarter: 2013Q4

REPORT INFORMATION
  Report Type: Spontaneous
  Country: US (occurrence: US)
  Receive Date: 20131121
  Receipt Date: 20131121
  Transmission Date: 20140711
  Serious: Yes (Hospitalization)
  Sender: FDA-Public Use
  Company Number: US-SHIRE-ALL1-2013-07896

PATIENT
  Age: 65 Year
  Sex: Male

DRUGS (1)
  1. LIALDA [Suspect]
     Indication: COLITIS ULCERATIVE
     Dosage: 1.2 G, 4X/DAY:QID
     Route: 048

REACTIONS (2)
  - Acute respiratory failure [Recovered/Resolved]
  - Interstitial lung disease [Recovered/Resolved]
